FAERS Safety Report 6507783-5 (Version None)
Quarter: 2009Q4

REPORT INFORMATION
  Report Type: 
  Country: None (occurrence: None)
  Receive Date: 20091221
  Receipt Date: 20091211
  Transmission Date: 20100525
  Serious: Yes (Other)
  Sender: FDA-Public Use
  Company Number: GB-MERCK-0912USA02310

PATIENT
  Age: 59 Year
  Sex: Male

DRUGS (3)
  1. PRINIVIL [Suspect]
     Route: 048
  2. ZOCOR [Suspect]
     Route: 048
  3. INSULIN [Suspect]
     Route: 065

REACTIONS (2)
  - HYPOGLYCAEMIA [None]
  - SOMNOLENCE [None]
